FAERS Safety Report 21264759 (Version 5)
Quarter: 2022Q4

REPORT INFORMATION
  Report Type: Spontaneous
  Country: ES (occurrence: ES)
  Receive Date: 20220829
  Receipt Date: 20221201
  Transmission Date: 20230113
  Serious: Yes (Other)
  Sender: FDA-Public Use
  Company Number: ES-BAYER-2022P011782

PATIENT
  Age: 13 Year
  Sex: Male

DRUGS (14)
  1. GADOBUTROL [Suspect]
     Active Substance: GADOBUTROL
     Indication: Magnetic resonance imaging
     Dosage: UNK
     Dates: start: 2017, end: 2017
  2. GADOBUTROL [Suspect]
     Active Substance: GADOBUTROL
     Indication: Magnetic resonance imaging
     Dosage: UNK
  3. GADOXETATE DISODIUM [Suspect]
     Active Substance: GADOXETATE DISODIUM
     Indication: Allergy test
     Dosage: UNK
     Dates: start: 2017, end: 2017
  4. GADOTERATE MEGLUMINE [Suspect]
     Active Substance: GADOTERATE MEGLUMINE
     Indication: Allergy test
     Dosage: UNK
     Dates: start: 2017, end: 2017
  5. METAMIZOLE [Suspect]
     Active Substance: METAMIZOLE
  6. CEFTRIAXONE [Suspect]
     Active Substance: CEFTRIAXONE
  7. CEFOTAXIME [Suspect]
     Active Substance: CEFOTAXIME SODIUM
  8. MEROPENEM [Suspect]
     Active Substance: MEROPENEM
  9. TEICOPLANIN [Suspect]
     Active Substance: TEICOPLANIN
  10. VANCOMYCIN [Suspect]
     Active Substance: VANCOMYCIN
  11. ACETAMINOPHEN [Suspect]
     Active Substance: ACETAMINOPHEN
  12. DEXKETOPROFEN [Suspect]
     Active Substance: DEXKETOPROFEN
  13. RIFAMPIN [Suspect]
     Active Substance: RIFAMPIN
  14. CLOXACILLIN SODIUM [Suspect]
     Active Substance: CLOXACILLIN SODIUM

REACTIONS (5)
  - Drug reaction with eosinophilia and systemic symptoms [Recovered/Resolved]
  - Allergy test positive [Recovered/Resolved]
  - Rash [Recovered/Resolved]
  - Pyrexia [Recovered/Resolved]
  - Vomiting [Recovered/Resolved]

NARRATIVE: CASE EVENT DATE: 20170101
